FAERS Safety Report 24752560 (Version 1)
Quarter: 2024Q4

REPORT INFORMATION
  Report Type: Report from Study
  Country: CA (occurrence: None)
  Receive Date: 20241219
  Receipt Date: 20241219
  Transmission Date: 20250114
  Serious: Yes (Other)
  Sender: ORION
  Company Number: CA-PFIZER INC-202400326793

PATIENT
  Age: 74 Year
  Sex: Female

DRUGS (2)
  1. METHOTREXATE [Suspect]
     Active Substance: METHOTREXATE
     Indication: Product used for unknown indication
  2. ORENCIA [Suspect]
     Active Substance: ABATACEPT
     Indication: Rheumatoid arthritis

REACTIONS (13)
  - Alopecia [Unknown]
  - Fatigue [Unknown]
  - Visual acuity reduced [Unknown]
  - Arthritis [Unknown]
  - Blood pressure increased [Unknown]
  - Dry eye [Unknown]
  - Dry skin [Unknown]
  - Erythema [Unknown]
  - Fall [Unknown]
  - Musculoskeletal pain [Unknown]
  - Osteoarthritis [Unknown]
  - Skin exfoliation [Unknown]
  - Traumatic fracture [Unknown]
